FAERS Safety Report 9278515 (Version 1)
Quarter: 2013Q2

REPORT INFORMATION
  Report Type: Spontaneous
  Country: US (occurrence: US)
  Receive Date: 20130508
  Receipt Date: 20130508
  Transmission Date: 20140414
  Serious: No
  Sender: FDA-Public Use
  Company Number: US-BAUSCH-BL-2013-001099

PATIENT
  Age: 80 Year
  Sex: Female

DRUGS (2)
  1. DORZOLAMIDE HYDROCHLORIDE AND TIMOLOL MALEATE OPHTHALMIC SOLUTION 2%/0 [Suspect]
     Indication: GLAUCOMA
     Dosage: ONE DROP IN EACH EYE TWICE DAILY
     Route: 047
     Dates: start: 20130206, end: 20130213
  2. PROPYLENE GLYCOL/MACROGOL 400 [Concomitant]

REACTIONS (2)
  - Product taste abnormal [Not Recovered/Not Resolved]
  - Throat irritation [Not Recovered/Not Resolved]
